FAERS Safety Report 9243234 (Version 1)
Quarter: 2013Q2

REPORT INFORMATION
  Report Type: Spontaneous
  Country: US (occurrence: US)
  Receive Date: 20130419
  Receipt Date: 20130419
  Transmission Date: 20140414
  Serious: Yes (Other)
  Sender: FDA-Public Use
  Company Number: CHPA2013US006398

PATIENT
  Age: 59 Year
  Sex: Female

DRUGS (2)
  1. MAALOX ANTACID/ANTIGAS MS LIQ COOL MINT [Suspect]
     Indication: ABDOMINAL PAIN
     Dosage: UNK, PRN
     Route: 048
  2. GAVISCON PEPPERMINT [Concomitant]
     Indication: ABDOMINAL PAIN
     Route: 048

REACTIONS (5)
  - Gastrooesophageal reflux disease [Not Recovered/Not Resolved]
  - Pain [Recovered/Resolved]
  - Therapeutic response unexpected [Unknown]
  - Off label use [Unknown]
  - Wrong technique in drug usage process [Unknown]
